FAERS Safety Report 5274632-5 (Version None)
Quarter: 2007Q1

REPORT INFORMATION
  Report Type: 
  Country: None (occurrence: None)
  Receive Date: 20070320
  Receipt Date: 20070313
  Transmission Date: 20070707
  Serious: Yes (Life-Threatening, Hospitalization)
  Sender: FDA-Public Use
  Company Number: 2007PV028852

PATIENT
  Age: 78 Year
  Sex: Male
  Weight: 74.8435 kg

DRUGS (3)
  1. BYETTA [Suspect]
     Dosage: 10 MCG
     Dates: start: 20050629, end: 20070122
  2. METFORMIN HCL [Concomitant]
  3. BETA-BLOCKER [Concomitant]

REACTIONS (7)
  - ANOREXIA [None]
  - CARDIOGENIC SHOCK [None]
  - HYPOGLYCAEMIA [None]
  - MULTI-ORGAN FAILURE [None]
  - MUSCLE ATROPHY [None]
  - MYOCARDIAL INFARCTION [None]
  - WEIGHT DECREASED [None]
